FAERS Safety Report 4482228-8 (Version None)
Quarter: 2004Q4

REPORT INFORMATION
  Report Type: 
  Country: None (occurrence: None)
  Receive Date: 20041022
  Receipt Date: 20041018
  Transmission Date: 20050328
  Serious: Yes (Other)
  Sender: FDA-Public Use
  Company Number: PHBS2004BR13822

PATIENT
  Age: 11 Year
  Sex: Female
  Weight: 32 kg

DRUGS (3)
  1. ELIDEL [Suspect]
     Indication: VITILIGO
     Dosage: UNK, QD
     Route: 061
  2. COMBIRON B 12 [Concomitant]
     Indication: ANAEMIA
     Dosage: UNK, BID
     Route: 048
  3. VITICROMIN [Concomitant]
     Indication: VITILIGO
     Dosage: 1 DF, QD
     Route: 048

REACTIONS (1)
  - HAEMATURIA [None]
